FAERS Safety Report 9312924 (Version 2)
Quarter: 2013Q3

REPORT INFORMATION
  Report Type: Report from Study
  Country: TW (occurrence: TW)
  Receive Date: 20130528
  Receipt Date: 20130730
  Transmission Date: 20140515
  Serious: Yes (Hospitalization)
  Sender: FDA-Public Use
  Company Number: TW-MERCK-1305TWN014632

PATIENT
  Age: 41 Year
  Sex: Female
  Weight: 61.7 kg

DRUGS (4)
  1. ASENAPINE MALEATE-SCHIZOPHRENIA [Suspect]
     Indication: SCHIZOPHRENIA
     Dosage: 10 MG, BID
     Route: 048
     Dates: start: 20130514
  2. LORAZEPAM [Concomitant]
     Dosage: 2.5 MG, HS
     Route: 048
     Dates: start: 20130416
  3. BROTIZOLAM [Concomitant]
     Dosage: 0.5 MG, PRN
     Route: 048
     Dates: start: 20130416
  4. BIPERIDEN HYDROCHLORIDE [Concomitant]
     Dosage: 4 MG, PRN
     Route: 048
     Dates: start: 20130416

REACTIONS (1)
  - Schizophrenia [Recovered/Resolved]
